FAERS Safety Report 18627982 (Version 2)
Quarter: 2021Q3

REPORT INFORMATION
  Report Type: Spontaneous
  Country: IT (occurrence: IT)
  Receive Date: 20201217
  Receipt Date: 20210921
  Transmission Date: 20211014
  Serious: Yes (Other)
  Sender: FDA-Public Use
  Company Number: IT-MYLANLABS-2020M1102070

PATIENT
  Age: 41 Year
  Sex: Female

DRUGS (14)
  1. PERTUZUMAB. [Suspect]
     Active Substance: PERTUZUMAB
     Indication: BREAST CANCER METASTATIC
     Dosage: 840 MILLIGRAM (EVERY 3 WEEKS)
     Route: 042
     Dates: start: 20170519
  2. TRASTUZUMAB. [Concomitant]
     Active Substance: TRASTUZUMAB
     Indication: METASTASES TO LIVER
     Dosage: 640 MILLIGRAM (EVERY 3 WEEKS )
     Dates: start: 20170519
  3. TRASTUZUMAB. [Suspect]
     Active Substance: TRASTUZUMAB
     Indication: BREAST CANCER METASTATIC
     Dosage: 2 MILLIGRAM/KILOGRAM
     Route: 041
     Dates: start: 2014
  4. TAMOXIFENE                         /00388701/ [Concomitant]
     Active Substance: TAMOXIFEN
     Indication: HORMONE THERAPY
  5. TRASTUZUMAB. [Concomitant]
     Active Substance: TRASTUZUMAB
     Indication: BREAST CANCER METASTATIC
  6. DOCETAXEL. [Concomitant]
     Active Substance: DOCETAXEL
     Indication: BREAST CANCER METASTATIC
     Dosage: 100 MILLIGRAM/SQ. METER (ON DAY 1 OF 21 DAYS CYCLE)
     Route: 065
     Dates: start: 2014
  7. TAMOXIFENE                         /00388701/ [Concomitant]
     Active Substance: TAMOXIFEN
     Indication: BREAST CANCER METASTATIC
     Dosage: 20 MILLIGRAM
     Route: 065
     Dates: start: 20150217
  8. CYCLOPHOSPHAMIDE. [Concomitant]
     Active Substance: CYCLOPHOSPHAMIDE
     Indication: BREAST CANCER METASTATIC
     Dosage: 600 MILLIGRAM/SQ. METER, ON DAY 1 OF 21 DAY CYCLE (4 CYCLES)
     Route: 065
     Dates: start: 2014
  9. EPIRUBICIN [Concomitant]
     Active Substance: EPIRUBICIN
     Indication: BREAST CANCER METASTATIC
     Dosage: 75 MILLIGRAM/SQ. METER, ON DAY 1 OF 21 DAY CYCLE (4 CYCLES)
     Route: 065
     Dates: start: 2014
  10. PACLITAXEL. [Suspect]
     Active Substance: PACLITAXEL
     Indication: BREAST CANCER METASTATIC
     Dosage: 76 MILLIGRAM, QW
     Route: 065
     Dates: start: 20170519
  11. TRASTUZUMAB. [Suspect]
     Active Substance: TRASTUZUMAB
     Dosage: 640 MILLIGRAM
     Route: 041
     Dates: start: 2017
  12. PERTUZUMAB. [Suspect]
     Active Substance: PERTUZUMAB
     Indication: METASTASES TO LIVER
  13. PACLITAXEL. [Suspect]
     Active Substance: PACLITAXEL
     Indication: METASTASES TO LIVER
     Dosage: 140 MILLIGRAM
     Route: 065
     Dates: start: 20170519
  14. TRASTUZUMAB. [Suspect]
     Active Substance: TRASTUZUMAB
     Dosage: LOADING DOSE
     Route: 041
     Dates: start: 2014

REACTIONS (2)
  - Neurotoxicity [Recovering/Resolving]
  - Hepatic function abnormal [Recovering/Resolving]

NARRATIVE: CASE EVENT DATE: 2017
